FAERS Safety Report 23926323 (Version 1)
Quarter: 2024Q2

REPORT INFORMATION
  Report Type: Spontaneous
  Country: ES (occurrence: ES)
  Receive Date: 20240531
  Receipt Date: 20240531
  Transmission Date: 20240715
  Serious: Yes (Hospitalization)
  Sender: FDA-Public Use
  Company Number: ES-SA-SAC20230309000285

PATIENT
  Age: 77 Year
  Sex: Male
  Weight: 89 kg

DRUGS (5)
  1. INSULIN LISPRO [Suspect]
     Active Substance: INSULIN LISPRO
     Indication: Type 1 diabetes mellitus
     Dosage: 4 INTERNATIONAL UNIT, UNKNOWN
     Route: 058
     Dates: start: 20220301
  2. INSULIN GLARGINE [Suspect]
     Active Substance: INSULIN GLARGINE
     Indication: Type 1 diabetes mellitus
     Dosage: 44 INTERNATIONAL UNIT, UNKNOWN
     Route: 058
     Dates: start: 20220301
  3. INSULIN GLARGINE [Suspect]
     Active Substance: INSULIN GLARGINE
     Indication: Type 2 diabetes mellitus
     Dosage: 46 INTERNATIONAL UNIT, UNKNOWN
     Route: 058
  4. INSULIN GLARGINE [Suspect]
     Active Substance: INSULIN GLARGINE
     Dosage: 50 INTERNATIONAL UNIT, DAILY
     Route: 058
  5. INSULIN GLARGINE [Suspect]
     Active Substance: INSULIN GLARGINE
     Dosage: 48 INTERNATIONAL UNIT, DAILY
     Route: 058

REACTIONS (6)
  - Urinary tract infection [Recovered/Resolved]
  - Bronchitis [Recovered/Resolved]
  - Blood glucose increased [Recovered/Resolved]
  - Blood glucose decreased [Recovered/Resolved]
  - Product storage error [Unknown]
  - Intentional product misuse [Unknown]

NARRATIVE: CASE EVENT DATE: 20240503
